FAERS Safety Report 18386126 (Version 1)
Quarter: 2020Q4

REPORT INFORMATION
  Report Type: Spontaneous
  Country: GB (occurrence: GB)
  Receive Date: 20201015
  Receipt Date: 20201015
  Transmission Date: 20210114
  Serious: Yes (Other)
  Sender: FDA-Public Use
  Company Number: GB-ACCORD-205132

PATIENT
  Age: 53 Year
  Sex: Female
  Weight: 71.2 kg

DRUGS (14)
  1. ADCAL-D3 [Concomitant]
     Active Substance: CALCIUM CARBONATE\CHOLECALCIFEROL
  2. REFRESH CELLUVISC [Concomitant]
     Active Substance: CARBOXYMETHYLCELLULOSE SODIUM
  3. GAVISCON ADVANCE [Concomitant]
     Active Substance: POTASSIUM BICARBONATE\SODIUM ALGINATE
  4. HYDROXYCHLOROQUINE [Suspect]
     Active Substance: HYDROXYCHLOROQUINE
     Indication: SJOGREN^S SYNDROME
     Route: 048
     Dates: start: 20070511, end: 20200918
  5. ONDANSETRON [Concomitant]
     Active Substance: ONDANSETRON
  6. HYDROCORTISONE. [Concomitant]
     Active Substance: HYDROCORTISONE
     Dosage: STAT DOSE
     Dates: start: 20200918, end: 20200918
  7. LOSARTAN. [Concomitant]
     Active Substance: LOSARTAN
  8. AZITHROMYCIN ANHYDROUS. [Concomitant]
     Active Substance: AZITHROMYCIN ANHYDROUS
  9. PARACETAMOL [Concomitant]
     Active Substance: ACETAMINOPHEN
  10. AMOXICILLIN. [Concomitant]
     Active Substance: AMOXICILLIN
  11. TINZAPARIN [Concomitant]
     Active Substance: TINZAPARIN
  12. PREDNISOLONE. [Suspect]
     Active Substance: PREDNISOLONE
     Indication: SJOGREN^S SYNDROME
     Route: 048
     Dates: start: 20200919, end: 20200921
  13. PREDNISOLONE. [Suspect]
     Active Substance: PREDNISOLONE
     Indication: SJOGREN^S SYNDROME
     Route: 048
     Dates: end: 20200918
  14. ALENDRONATE SODIUM/ALENDRONIC ACID [Concomitant]
     Active Substance: ALENDRONATE SODIUM

REACTIONS (1)
  - Hallucination, visual [Unknown]

NARRATIVE: CASE EVENT DATE: 20200921
